FAERS Safety Report 4866781-8 (Version None)
Quarter: 2005Q4

REPORT INFORMATION
  Report Type: 
  Country: None (occurrence: None)
  Receive Date: 20051221
  Receipt Date: 20051209
  Transmission Date: 20060501
  Serious: Yes (Death, Hospitalization)
  Sender: FDA-Public Use
  Company Number: RENA-11311

PATIENT
  Age: 79 Year
  Sex: Female
  Weight: 57 kg

DRUGS (12)
  1. RENAGEL [Suspect]
     Indication: HYPERPHOSPHATAEMIA
     Dosage: 2.4 G BID PO
     Route: 048
     Dates: start: 20040801
  2. RENAGEL [Suspect]
     Indication: HYPERPHOSPHATAEMIA
     Dosage: 1.6 G BID PO
     Route: 048
  3. ELTHYRONE [Concomitant]
  4. CALCIUM CARBONATE [Concomitant]
  5. LOGASTRIC [Concomitant]
  6. ZESTRIL [Concomitant]
  7. LODIXAL [Concomitant]
  8. KAYEXALATE [Concomitant]
  9. LASIX [Concomitant]
  10. DEPRONAL [Concomitant]
  11. PULMICORT [Concomitant]
  12. SINTROM MITIS [Concomitant]

REACTIONS (3)
  - BLOOD THYROID STIMULATING HORMONE INCREASED [None]
  - CACHEXIA [None]
  - DRUG INTERACTION [None]
